FAERS Safety Report 22313564 (Version 2)
Quarter: 2023Q2

REPORT INFORMATION
  Report Type: Report from Study
  Country: US (occurrence: US)
  Receive Date: 20230512
  Receipt Date: 20230609
  Transmission Date: 20230722
  Serious: Yes (Hospitalization, Other)
  Sender: FDA-Public Use
  Company Number: US-GILEAD-2023-0627930

PATIENT
  Sex: Female

DRUGS (2)
  1. AMBRISENTAN [Suspect]
     Active Substance: AMBRISENTAN
     Indication: Pulmonary arterial hypertension
     Dosage: 5 MG, QD
     Route: 065
     Dates: start: 20220322
  2. TADALAFIL [Concomitant]
     Active Substance: TADALAFIL

REACTIONS (5)
  - Respiratory distress [Unknown]
  - Hypoxia [Unknown]
  - Tachycardia [Unknown]
  - Cellulitis [Unknown]
  - Lymphadenopathy [Unknown]
